FAERS Safety Report 7528889-8 (Version None)
Quarter: 2011Q2

REPORT INFORMATION
  Report Type: 
  Country: None (occurrence: None)
  Receive Date: 20110607
  Receipt Date: 20110525
  Transmission Date: 20111010
  Serious: Yes (Hospitalization)
  Sender: FDA-Public Use
  Company Number: IT-JNJFOC-20110512311

PATIENT
  Sex: Female

DRUGS (6)
  1. LEXOTAN [Suspect]
     Indication: INSOMNIA
     Route: 048
     Dates: start: 20000222, end: 20100222
  2. HALOPERIDOL [Suspect]
     Indication: PRODUCT USED FOR UNKNOWN INDICATION
     Route: 048
     Dates: start: 20000222, end: 20100222
  3. NORTRIPTYLINE HCL [Concomitant]
     Indication: PRODUCT USED FOR UNKNOWN INDICATION
     Route: 048
  4. HUMAN INSULIN [Concomitant]
     Indication: DIABETES MELLITUS
     Route: 058
  5. CONVERTEN [Concomitant]
     Indication: PRODUCT USED FOR UNKNOWN INDICATION
     Route: 065
  6. ENAPREN [Concomitant]
     Indication: HYPERTENSION
     Route: 048

REACTIONS (3)
  - FALL [None]
  - SYNCOPE [None]
  - HEAD INJURY [None]
